FAERS Safety Report 24142472 (Version 1)
Quarter: 2024Q3

REPORT INFORMATION
  Report Type: Spontaneous
  Country: US (occurrence: US)
  Receive Date: 20240726
  Receipt Date: 20240726
  Transmission Date: 20241016
  Serious: Yes (Other)
  Sender: ATHENA
  Company Number: US-SABAL THERAPEUTICS LLC-2024-ATH-000061

PATIENT

DRUGS (4)
  1. OZOBAX [Suspect]
     Active Substance: BACLOFEN
     Indication: Hiccups
     Route: 065
  2. METOCLOPRAMIDE [Suspect]
     Active Substance: METOCLOPRAMIDE
     Indication: Hiccups
     Route: 065
  3. CHLORPROMAZINE [Suspect]
     Active Substance: CHLORPROMAZINE
     Indication: Hiccups
     Route: 065
  4. INSULIN NOS [Concomitant]
     Active Substance: INSULIN NOS
     Indication: Type 2 diabetes mellitus
     Route: 065

REACTIONS (2)
  - Delirium [Unknown]
  - Drug ineffective for unapproved indication [Unknown]
